FAERS Safety Report 21506325 (Version 1)
Quarter: 2022Q4

REPORT INFORMATION
  Report Type: Spontaneous
  Country: US (occurrence: US)
  Receive Date: 20221026
  Receipt Date: 20221026
  Transmission Date: 20230112
  Serious: Yes (Hospitalization, Other)
  Sender: FDA-Public Use
  Company Number: US-VELOXIS PHARMACEUTICALS, INC.-2022-VEL-00686

PATIENT
  Sex: Female

DRUGS (1)
  1. ENVARSUS XR [Suspect]
     Active Substance: TACROLIMUS
     Indication: Renal transplant
     Dosage: UNK

REACTIONS (6)
  - Near death experience [Unknown]
  - COVID-19 [Unknown]
  - Amnestic disorder [Unknown]
  - General physical condition abnormal [Unknown]
  - Drug level increased [Unknown]
  - Wrong technique in product usage process [Unknown]
